FAERS Safety Report 9883895 (Version 2)
Quarter: 2014Q2

REPORT INFORMATION
  Report Type: Spontaneous
  Country: US (occurrence: US)
  Receive Date: 20140210
  Receipt Date: 20140509
  Transmission Date: 20141212
  Serious: No
  Sender: FDA-Public Use
  Company Number: US-009507513-1402USA003726

PATIENT
  Sex: Male
  Weight: 97.51 kg

DRUGS (10)
  1. DULERA [Suspect]
     Indication: ASTHMA
     Dosage: 2 INHALATION TWICE DAILY ORAL INHALATION, 800/20 TOTAL DAILY DOSE
     Route: 055
     Dates: start: 2011
  2. LOVAZA [Concomitant]
  3. TRILIPIX [Concomitant]
     Dosage: TRILIPIX GENERIC
  4. CRESTOR [Concomitant]
  5. PROTONIX [Concomitant]
     Dosage: PROTONIX GENERIC
  6. AVODART [Concomitant]
  7. TERAZOSIN HYDROCHLORIDE [Concomitant]
  8. ASPIRIN [Concomitant]
  9. ALLERTEC [Concomitant]
  10. VITAMIN D (UNSPECIFIED) [Concomitant]
     Dosage: VITAMIN D 2000

REACTIONS (4)
  - Spirometry abnormal [Unknown]
  - Drug dose omission [Unknown]
  - Incorrect dose administered [Unknown]
  - Product quality issue [Unknown]
